FAERS Safety Report 10064805 (Version 1)
Quarter: 2014Q2

REPORT INFORMATION
  Report Type: Spontaneous
  Country: US (occurrence: None)
  Receive Date: 20140404
  Receipt Date: 20140404
  Transmission Date: 20141212
  Serious: Yes (Hospitalization)
  Sender: FDA-Public Use
  Company Number: UTC-046038

PATIENT
  Age: 1 Year
  Sex: Female
  Weight: 3.63 kg

DRUGS (2)
  1. REMODULIN [Suspect]
     Indication: PULMONARY ARTERIAL HYPERTENSION
     Dosage: 0.073 UG/KG, 1 IN 1 MIN
     Route: 058
     Dates: start: 20140203
  2. REVATIO (SILDENAFIL CITRATE) (SUSPENSION) [Concomitant]

REACTIONS (1)
  - Respiratory distress [None]
